FAERS Safety Report 20081258 (Version 1)
Quarter: 2021Q4

REPORT INFORMATION
  Report Type: Spontaneous
  Country: US (occurrence: None)
  Receive Date: 20211117
  Receipt Date: 20211117
  Transmission Date: 20220303
  Serious: No
  Sender: FDA-Public Use
  Company Number: 2021A797905

PATIENT
  Sex: Female

DRUGS (1)
  1. PULMICORT FLEXHALER [Suspect]
     Active Substance: BUDESONIDE
     Dosage: 180.0UG AS REQUIRED
     Route: 055

REACTIONS (3)
  - Fatigue [Not Recovered/Not Resolved]
  - Device defective [Unknown]
  - Device delivery system issue [Unknown]
